FAERS Safety Report 10181762 (Version 1)
Quarter: 2014Q2

REPORT INFORMATION
  Report Type: Spontaneous
  Country: US (occurrence: US)
  Receive Date: 20140519
  Receipt Date: 20140519
  Transmission Date: 20141212
  Serious: Yes (Hospitalization)
  Sender: FDA-Public Use
  Company Number: US-DSJP-DSU-2014-108253

PATIENT
  Sex: 0

DRUGS (1)
  1. WELCHOL [Suspect]
     Indication: HYPERLIPIDAEMIA
     Dosage: 1250 MG, BID
     Route: 048

REACTIONS (2)
  - Investigation [Not Recovered/Not Resolved]
  - Drug administration error [Not Recovered/Not Resolved]
